FAERS Safety Report 6336705-5 (Version None)
Quarter: 2009Q3

REPORT INFORMATION
  Report Type: 
  Country: None (occurrence: None)
  Receive Date: 20090831
  Receipt Date: 20090831
  Transmission Date: 20100115
  Serious: Yes (Other)
  Sender: FDA-Public Use
  Company Number: None

PATIENT
  Age: 44 Year
  Sex: Male
  Weight: 74.3899 kg

DRUGS (2)
  1. CRESTOR [Suspect]
     Indication: BLOOD CHOLESTEROL ABNORMAL
     Dosage: 1 TABLET DAILY PO
     Route: 048
     Dates: start: 20090629, end: 20090717
  2. CRESTOR [Suspect]
     Indication: BLOOD TRIGLYCERIDES ABNORMAL
     Dosage: 1 TABLET DAILY PO
     Route: 048
     Dates: start: 20090629, end: 20090717

REACTIONS (4)
  - ABDOMINAL PAIN [None]
  - HEADACHE [None]
  - INFLUENZA LIKE ILLNESS [None]
  - MYALGIA [None]
